FAERS Safety Report 19508615 (Version 1)
Quarter: 2021Q3

REPORT INFORMATION
  Report Type: Report from Study
  Country: DE (occurrence: DE)
  Receive Date: 20210708
  Receipt Date: 20210708
  Transmission Date: 20211014
  Serious: Yes (Other)
  Sender: FDA-Public Use
  Company Number: DE-MYLANLABS-2021M1040498

PATIENT
  Age: 30 Year

DRUGS (9)
  1. ACICLOVIR [Suspect]
     Active Substance: ACYCLOVIR
     Indication: ANTIVIRAL TREATMENT
     Dosage: 400 MILLIGRAM, TID,400MG THREE TIMES/DAY
     Route: 048
  2. ACICLOVIR [Suspect]
     Active Substance: ACYCLOVIR
     Indication: ANTIVIRAL TREATMENT
     Dosage: AT A DOSE OF 5?10 MG/KG BODY WEIGHT THREE TIMES/DAY
     Route: 042
  3. ACICLOVIR [Suspect]
     Active Substance: ACYCLOVIR
     Indication: HERPES SIMPLEX
  4. ACICLOVIR [Suspect]
     Active Substance: ACYCLOVIR
     Indication: ANTIVIRAL TREATMENT
     Dosage: LOCAL THERAPY
     Route: 061
  5. FLUDARABINE [Concomitant]
     Active Substance: FLUDARABINE PHOSPHATE
     Indication: LEUKAEMIA RECURRENT
     Dosage: SALVAGE THERAPY
     Route: 065
  6. ACICLOVIR [Suspect]
     Active Substance: ACYCLOVIR
     Indication: ORAL HERPES
  7. IDARUBICIN [Concomitant]
     Active Substance: IDARUBICIN
     Indication: LEUKAEMIA RECURRENT
     Dosage: SALVAGE THERAPY
     Route: 065
  8. FOSCAVIR [Suspect]
     Active Substance: FOSCARNET SODIUM
     Indication: STOMATITIS
     Dosage: 40 MILLIGRAM/KILOGRAM, TID,0 MG/KG BODY WEIGHT THREE TIMES A DAY
     Route: 042
  9. CYTARABINE. [Concomitant]
     Active Substance: CYTARABINE
     Indication: LEUKAEMIA RECURRENT
     Dosage: SALVAGE THERAPY
     Route: 065

REACTIONS (1)
  - Pathogen resistance [Recovered/Resolved]
